FAERS Safety Report 8816470 (Version 2)
Quarter: 2013Q1

REPORT INFORMATION
  Report Type: Spontaneous
  Country: GB (occurrence: None)
  Receive Date: 20120927
  Receipt Date: 20121115
  Transmission Date: 20140127
  Serious: Yes (Disabling, Other)
  Sender: FDA-Public Use
  Company Number: AUR-APL-2012-04117

PATIENT
  Age: 89 Year
  Sex: Male

DRUGS (7)
  1. SIMVASTATIN [Suspect]
     Indication: HYPERCHOLESTEROLAEMIA
     Route: 048
     Dates: end: 20120829
  2. SIMVASTATIN [Suspect]
     Indication: PROPHYLAXIS
     Route: 048
     Dates: end: 20120829
  3. CYPROTERONE ACETATE [Suspect]
     Indication: PROSTATE CANCER
     Dosage: (100 MG,3 IN 1 D)
     Route: 048
     Dates: start: 20120731, end: 20120829
  4. ALFACALCIDOL (ALFACALCIDOL) [Concomitant]
  5. AMLODIPINE (AMLODIPINE) [Concomitant]
  6. DECAPEPTYL SR (GONADORELIN) [Concomitant]
  7. FERROUS FUMARATE (FERROUS FUMARATE) [Concomitant]

REACTIONS (5)
  - Prostate cancer [None]
  - Rhabdomyolysis [None]
  - Haemodialysis [None]
  - Renal failure acute [None]
  - Drug interaction [None]
